FAERS Safety Report 24063906 (Version 1)
Quarter: 2024Q3

REPORT INFORMATION
  Report Type: Report from Study
  Country: US (occurrence: US)
  Receive Date: 20240709
  Receipt Date: 20240709
  Transmission Date: 20241017
  Serious: Yes (Other)
  Sender: HELSINN HEALTHCARE
  Company Number: US-HBP-2024US030931

PATIENT
  Sex: Male

DRUGS (8)
  1. VALCHLOR [Suspect]
     Active Substance: MECHLORETHAMINE
     Indication: Cutaneous T-cell lymphoma
     Dosage: UNK, ONCE A DAY OR TWICE A DAY
     Route: 061
     Dates: start: 202403, end: 2024
  2. VALCHLOR [Suspect]
     Active Substance: MECHLORETHAMINE
     Dosage: UNK, THREE DAYS IN A ROW AND BACK OFF FOR ONE DAY
     Route: 061
     Dates: start: 2024, end: 2024
  3. VALCHLOR [Suspect]
     Active Substance: MECHLORETHAMINE
     Dosage: UNK, ONCE EVERY OTHER DAY OR ONCE EVERY TWO DAYS
     Route: 061
     Dates: start: 2024
  4. VALSARTAN [Concomitant]
     Active Substance: VALSARTAN
     Dosage: UNK, UNKNOWN
  5. FENOFIBRATE [Concomitant]
     Active Substance: FENOFIBRATE
     Dosage: UNK, UNKNOWN
  6. LEVOTHYROXINE SODIUM [Concomitant]
     Active Substance: LEVOTHYROXINE SODIUM
     Dosage: UNK, UNKNOWN
  7. ATORVASTATIN CALCIUM [Concomitant]
     Active Substance: ATORVASTATIN CALCIUM
     Dosage: UNK, UNKNOWN
  8. AMLODIPINE BESYLATE [Concomitant]
     Active Substance: AMLODIPINE BESYLATE
     Dosage: UNK, UNKNOWN

REACTIONS (8)
  - Cutaneous T-cell lymphoma [Unknown]
  - Condition aggravated [Unknown]
  - Skin lesion [Unknown]
  - Skin fragility [Not Recovered/Not Resolved]
  - Skin exfoliation [Unknown]
  - Skin discolouration [Unknown]
  - Off label use [Unknown]
  - Product complaint [Unknown]

NARRATIVE: CASE EVENT DATE: 20240101
